FAERS Safety Report 10889308 (Version 2)
Quarter: 2015Q1

REPORT INFORMATION
  Report Type: Report from Study
  Country: JP (occurrence: JP)
  Receive Date: 20150305
  Receipt Date: 20150320
  Transmission Date: 20150721
  Serious: Yes (Death)
  Sender: FDA-Public Use
  Company Number: JP-B.I. PHARMACEUTICALS,INC./RIDGEFIELD-2015-BI-11419NB

PATIENT
  Age: 72 Year
  Sex: Male
  Weight: 60 kg

DRUGS (6)
  1. ALDACTONE [Concomitant]
     Active Substance: SPIRONOLACTONE
     Indication: PRODUCT USED FOR UNKNOWN INDICATION
     Dosage: 25 MG
     Route: 048
     Dates: end: 20131228
  2. TAKEPRON [Concomitant]
     Active Substance: LANSOPRAZOLE
     Indication: PROPHYLAXIS
     Dosage: 15 MG
     Route: 048
     Dates: start: 20121207, end: 20131228
  3. RENIVACE [Concomitant]
     Active Substance: ENALAPRIL
     Indication: HYPERTENSION
     Dosage: 5 MG
     Route: 048
     Dates: end: 20131228
  4. PRADAXA [Suspect]
     Active Substance: DABIGATRAN ETEXILATE MESYLATE
     Indication: CEREBROVASCULAR ACCIDENT PROPHYLAXIS
     Dosage: 220 MG
     Route: 048
     Dates: start: 20121225, end: 20131225
  5. EVAMYL [Concomitant]
     Active Substance: LORMETAZEPAM
     Indication: INSOMNIA
     Dosage: 1 MG
     Route: 048
     Dates: start: 20121215, end: 20131228
  6. ARTIST [Concomitant]
     Active Substance: CARVEDILOL
     Indication: HYPERTENSION
     Dosage: 10 MG
     Route: 048
     Dates: end: 20131228

REACTIONS (1)
  - Death [Fatal]

NARRATIVE: CASE EVENT DATE: 20131228
